FAERS Safety Report 7927190 (Version 6)
Quarter: 2013Q2

REPORT INFORMATION
  Report Type: Spontaneous
  Country: US (occurrence: US)
  Receive Date: 20110502
  Receipt Date: 20130424
  Transmission Date: 20140414
  Serious: Yes (Other)
  Sender: FDA-Public Use
  Company Number: US-ASTRAZENECA-2010SE18276

PATIENT
  Age: 49 Year
  Sex: Female

DRUGS (1)
  1. NEXIUM [Suspect]
     Route: 048

REACTIONS (18)
  - Neoplasm malignant [Unknown]
  - Gastrooesophageal reflux disease [Unknown]
  - Bruxism [Unknown]
  - Retching [Unknown]
  - Abdominal distension [Unknown]
  - Abdominal distension [Unknown]
  - Throat irritation [Unknown]
  - Haemorrhoids [Unknown]
  - Infrequent bowel movements [Unknown]
  - Pharyngeal disorder [Unknown]
  - Influenza [Unknown]
  - Eructation [Unknown]
  - Flatulence [Unknown]
  - Nausea [Unknown]
  - Abdominal pain upper [Unknown]
  - Flatulence [Unknown]
  - Malaise [Unknown]
  - Drug dose omission [Unknown]
